FAERS Safety Report 6667060-9 (Version None)
Quarter: 2010Q2

REPORT INFORMATION
  Report Type: 
  Country: None (occurrence: None)
  Receive Date: 20100401
  Receipt Date: 20100316
  Transmission Date: 20101027
  Serious: Yes (Disabling, Other)
  Sender: FDA-Public Use
  Company Number: TRP_06818_2010

PATIENT
  Sex: Male
  Weight: 90.7194 kg

DRUGS (4)
  1. INFERGEN [Suspect]
     Indication: HEPATITIS C
     Dosage: 15UG QD, SUBCUTANEOUS
     Route: 058
     Dates: start: 20100123, end: 20100226
  2. RIBAVIRIN [Suspect]
     Indication: HEPATITIS C
     Dosage: 1000 MG, 600 MG QAM AND 400MG QPM] ORAL)
     Route: 048
     Dates: start: 20100123, end: 20100226
  3. RIBAVIRIN [Suspect]
     Indication: HEPATITIS C
     Dosage: DF
  4. PEGASYS [Suspect]
     Indication: HEPATITIS C
     Dosage: DF

REACTIONS (18)
  - ANXIETY [None]
  - CHILLS [None]
  - DIZZINESS [None]
  - DYSPNOEA [None]
  - FEELING ABNORMAL [None]
  - HALLUCINATION, VISUAL [None]
  - HEADACHE [None]
  - HYPERHIDROSIS [None]
  - IMPAIRED WORK ABILITY [None]
  - INFLUENZA LIKE ILLNESS [None]
  - MALAISE [None]
  - MENTAL DISORDER [None]
  - NAUSEA [None]
  - NO THERAPEUTIC RESPONSE [None]
  - PAIN [None]
  - PHOTOPSIA [None]
  - QUALITY OF LIFE DECREASED [None]
  - VOMITING [None]
